FAERS Safety Report 5284173-7 (Version None)
Quarter: 2007Q1

REPORT INFORMATION
  Report Type: 
  Country: None (occurrence: None)
  Receive Date: 20061218
  Receipt Date: 20060126
  Transmission Date: 20070707
  Serious: Yes (Other)
  Sender: FDA-Public Use
  Company Number: PI2006-26

PATIENT
  Age: 60 Year
  Sex: Female
  Weight: 89.8122 kg

DRUGS (7)
  1. CHLORAPREP WITH TINT [Suspect]
     Indication: PREOPERATIVE CARE
     Dosage: 10.5-ML, ONCE, TOPICAL
     Route: 061
     Dates: start: 20060119
  2. ALLEGRA [Concomitant]
  3. DIOVAN [Concomitant]
  4. VERELAN [Concomitant]
  5. C+ [Concomitant]
  6. PREVACID [Concomitant]
  7. TOPAMAX [Concomitant]

REACTIONS (1)
  - SKIN IRRITATION [None]
